FAERS Safety Report 8602683-9 (Version None)
Quarter: 2012Q3

REPORT INFORMATION
  Report Type: 
  Country: None (occurrence: None)
  Receive Date: 20120817
  Receipt Date: 20120807
  Transmission Date: 20120928
  Serious: Yes (Hospitalization)
  Sender: FDA-Public Use
  Company Number: FR-PFIZER INC-2012192513

PATIENT
  Age: 64 Year
  Sex: Female
  Weight: 52 kg

DRUGS (15)
  1. FLUOROURACIL [Suspect]
     Indication: COLORECTAL CANCER METASTATIC
     Dosage: 400 MG/M2, ON DAY ONE OF EACH 14 DAY CYCLE
     Route: 042
     Dates: start: 20120503
  2. ARANESP [Concomitant]
     Indication: ANAEMIA
     Dosage: UNK
     Dates: start: 20120611
  3. MICONAZOLE [Concomitant]
     Indication: CANDIDIASIS
  4. IRINOTECAN HCL [Suspect]
     Indication: COLORECTAL CANCER METASTATIC
     Dosage: 180 MG/M2, ON DAY ONE OF EACH 14 DAY CYCLE
     Route: 042
     Dates: start: 20120503
  5. MORPHINE SULFATE [Concomitant]
     Indication: BACK PAIN
     Dosage: UNK
     Dates: start: 20120523
  6. BLINDED THERAPY [Suspect]
     Indication: COLORECTAL CANCER METASTATIC
     Dosage: UNK
     Dates: start: 20120503
  7. ACETAMINOPHEN W/ CODEINE [Concomitant]
     Indication: BACK PAIN
     Dosage: UNK
     Dates: start: 20120428
  8. FOSAMAX [Concomitant]
     Indication: OSTEOPOROSIS
     Dosage: UNK
     Dates: start: 20110101
  9. INNOHEP [Concomitant]
     Indication: VENOUS THROMBOSIS
     Dosage: UNK
     Dates: start: 20120524
  10. PREDNISOLONE [Concomitant]
     Indication: PAIN
     Dosage: UNK
     Dates: start: 20120611
  11. TRAMADOL HCL [Concomitant]
     Indication: BACK PAIN
     Dosage: UNK
     Dates: start: 20120515
  12. DEBRIDAT [Concomitant]
     Indication: ABDOMINAL DISTENSION
     Dosage: UNK
     Dates: start: 20120515
  13. FLUOROURACIL [Suspect]
     Dosage: 2400 MG/M2, ON DAY ONE AND TWO OF EACH 14 DAY CYCLE
     Route: 042
  14. DURAGESIC-100 [Concomitant]
     Indication: BACK PAIN
     Dosage: UNK
     Dates: start: 20120523
  15. LEUCOVORIN CALCIUM [Suspect]
     Indication: COLORECTAL CANCER METASTATIC
     Dosage: 400 MG/M2, ON DAY ONE OF EACH 14 DAY CYCLE
     Route: 042
     Dates: start: 20120503

REACTIONS (1)
  - OSTEOPOROSIS [None]
